FAERS Safety Report 18378248 (Version 3)
Quarter: 2020Q4

REPORT INFORMATION
  Report Type: Spontaneous
  Country: AT (occurrence: AT)
  Receive Date: 20201013
  Receipt Date: 20201216
  Transmission Date: 20210114
  Serious: Yes (Life-Threatening, Other)
  Sender: FDA-Public Use
  Company Number: AT-PFIZER INC-2020380581

PATIENT
  Age: 69 Year
  Sex: Female

DRUGS (10)
  1. RAMIPRIL. [Interacting]
     Active Substance: RAMIPRIL
     Dosage: UNK
  2. ACETYLSALICYLIC ACID [Interacting]
     Active Substance: ASPIRIN
     Dosage: UNK
  3. BISOPROLOL [Interacting]
     Active Substance: BISOPROLOL
     Dosage: UNK
  4. CLOPIDOGREL [Interacting]
     Active Substance: CLOPIDOGREL BISULFATE
     Dosage: UNK
  5. TRAZODONE [Interacting]
     Active Substance: TRAZODONE HYDROCHLORIDE
     Dosage: UNK
  6. INSULIN [Interacting]
     Active Substance: INSULIN NOS
     Indication: DIABETES MELLITUS
     Dosage: UNK
  7. PANTOPRAZOLE [Suspect]
     Active Substance: PANTOPRAZOLE
     Dosage: UNK
     Route: 065
  8. ATORVASTATIN CALCIUM. [Interacting]
     Active Substance: ATORVASTATIN CALCIUM
     Dosage: UNK
  9. SPIRONOLACTONE. [Interacting]
     Active Substance: SPIRONOLACTONE
     Dosage: UNK
  10. LOSARTAN. [Interacting]
     Active Substance: LOSARTAN
     Dosage: UNK

REACTIONS (5)
  - Haemodynamic instability [Unknown]
  - Drug interaction [Unknown]
  - Bradycardia [Unknown]
  - Multiple drug therapy [Unknown]
  - Hyperkalaemia [Unknown]
